FAERS Safety Report 4979400-7 (Version None)
Quarter: 2006Q2

REPORT INFORMATION
  Report Type: 
  Country: None (occurrence: None)
  Receive Date: 20060421
  Receipt Date: 20051117
  Transmission Date: 20061013
  Serious: Yes (Death, Life-Threatening, Hospitalization, Other)
  Sender: FDA-Public Use
  Company Number: US-MERCK-0511USA03131

PATIENT
  Age: 63 Year
  Sex: Female
  Weight: 66 kg

DRUGS (15)
  1. VIOXX [Suspect]
     Indication: ARTHRITIS
     Route: 048
     Dates: start: 20020301, end: 20031101
  2. EVISTA [Concomitant]
     Indication: HORMONE REPLACEMENT THERAPY
     Route: 065
     Dates: start: 20020401, end: 20031101
  3. FOSAMAX [Concomitant]
     Indication: OSTEOPOROSIS
     Route: 048
  4. DIOVAN [Concomitant]
     Indication: HYPERTENSION
     Route: 065
  5. NEXIUM [Concomitant]
     Indication: DYSPEPSIA
     Route: 065
  6. NPH INSULIN [Concomitant]
     Route: 058
  7. LASIX [Concomitant]
     Route: 065
  8. REGLAN [Concomitant]
     Route: 065
  9. POTASSIUM CHLORIDE [Concomitant]
     Route: 065
  10. ALDACTONE [Concomitant]
     Route: 065
  11. MAGNESIUM SULFATE [Concomitant]
     Route: 065
  12. PEPCID [Concomitant]
     Route: 065
  13. PAXIL [Concomitant]
     Route: 065
  14. OXYCONTIN [Concomitant]
     Route: 065
  15. TOPROL-XL [Concomitant]
     Route: 065

REACTIONS (29)
  - ANAEMIA [None]
  - APHTHOUS STOMATITIS [None]
  - ATELECTASIS [None]
  - BACTERIAL INFECTION [None]
  - BLINDNESS UNILATERAL [None]
  - CARDIAC FAILURE CONGESTIVE [None]
  - CARDIO-RESPIRATORY ARREST [None]
  - CEREBROVASCULAR ACCIDENT [None]
  - CLOSTRIDIUM COLITIS [None]
  - CONSTIPATION [None]
  - DEPRESSION [None]
  - DIABETIC FOOT [None]
  - DIARRHOEA [None]
  - GASTROINTESTINAL HAEMORRHAGE [None]
  - HEPATIC CIRRHOSIS [None]
  - HEPATIC ENCEPHALOPATHY [None]
  - HYPERTENSION [None]
  - HYPOALBUMINAEMIA [None]
  - HYPOXIC ENCEPHALOPATHY [None]
  - MALNUTRITION [None]
  - MYOCARDIAL INFARCTION [None]
  - PROTEINURIA [None]
  - PULMONARY HYPERTENSION [None]
  - RENAL FAILURE CHRONIC [None]
  - RESPIRATORY ARREST [None]
  - SEPSIS [None]
  - SHOCK [None]
  - SINUS DISORDER [None]
  - VASCULAR ENCEPHALOPATHY [None]
